FAERS Safety Report 6044814-3 (Version None)
Quarter: 2009Q1

REPORT INFORMATION
  Report Type: 
  Country: None (occurrence: None)
  Receive Date: 20090120
  Receipt Date: 20090112
  Transmission Date: 20090719
  Serious: Yes (Death, Other)
  Sender: FDA-Public Use
  Company Number: JP-BAXTER-2008BH009101

PATIENT
  Age: 9 Year
  Sex: Male
  Weight: 24 kg

DRUGS (6)
  1. ENDOXAN BAXTER [Suspect]
     Indication: LYMPHOMA
     Route: 041
     Dates: start: 20080721, end: 20080721
  2. KYTRIL [Suspect]
     Indication: LYMPHOMA
     Route: 042
     Dates: start: 20080721, end: 20080721
  3. ONCOVIN [Suspect]
     Indication: LYMPHOMA
     Route: 042
     Dates: start: 20080721, end: 20080721
  4. DAUNOMYCIN [Suspect]
     Indication: LYMPHOMA
     Route: 041
     Dates: start: 20080721, end: 20080721
  5. PREDONINE [Concomitant]
     Indication: LYMPHOMA
     Route: 042
     Dates: start: 20080714, end: 20080716
  6. PREDONINE [Concomitant]
     Route: 042
     Dates: start: 20080717, end: 20080721

REACTIONS (2)
  - PERICARDIAL EFFUSION [None]
  - SHOCK [None]
